FAERS Safety Report 7318437-X (Version None)
Quarter: 2011Q1

REPORT INFORMATION
  Report Type: 
  Country: None (occurrence: None)
  Receive Date: 20110228
  Receipt Date: 20110222
  Transmission Date: 20110831
  Serious: Yes (Other)
  Sender: FDA-Public Use
  Company Number: US-PFIZER INC-2011039043

PATIENT
  Sex: Female
  Weight: 81.633 kg

DRUGS (7)
  1. ADDERALL 10 [Concomitant]
     Indication: DEPRESSION
     Dosage: UNK
  2. CHANTIX [Suspect]
     Indication: SMOKING CESSATION THERAPY
     Dosage: 1 MG, 2X/DAY
     Route: 048
     Dates: start: 20110206, end: 20110221
  3. KLONOPIN [Concomitant]
     Dosage: UNK
  4. PEPCID [Concomitant]
     Dosage: UNK
  5. PRAVASTATIN [Concomitant]
     Indication: BLOOD CHOLESTEROL INCREASED
     Dosage: UNK
  6. TRIAMTERENE [Concomitant]
     Dosage: UNK
  7. SERTRALINE [Concomitant]
     Indication: DEPRESSION
     Dosage: UNK

REACTIONS (6)
  - MOOD SWINGS [None]
  - SKIN EXFOLIATION [None]
  - PRURITUS [None]
  - BLISTER [None]
  - DEPRESSION [None]
  - AGGRESSION [None]
